FAERS Safety Report 4447460-8 (Version None)
Quarter: 2004Q3

REPORT INFORMATION
  Report Type: 
  Country: None (occurrence: None)
  Receive Date: 20040823
  Receipt Date: 20040427
  Transmission Date: 20050211
  Serious: No
  Sender: FDA-Public Use
  Company Number: PHEH2004US04714

PATIENT
  Sex: Female
  Weight: 45.4 kg

DRUGS (1)
  1. ZELNORM [Suspect]
     Dosage: 2 MG BID ORAL
     Route: 048

REACTIONS (2)
  - CONSTIPATION [None]
  - FEELING ABNORMAL [None]
